FAERS Safety Report 20269250 (Version 2)
Quarter: 2022Q1

REPORT INFORMATION
  Report Type: Spontaneous
  Country: ES (occurrence: ES)
  Receive Date: 20220101
  Receipt Date: 20220107
  Transmission Date: 20220423
  Serious: Yes (Hospitalization, Other)
  Sender: FDA-Public Use
  Company Number: ES-MLMSERVICE-20211214-3270307-1

PATIENT
  Age: 50 Year
  Sex: Female

DRUGS (4)
  1. VALACYCLOVIR HYDROCHLORIDE [Suspect]
     Active Substance: VALACYCLOVIR HYDROCHLORIDE
     Indication: Varicella
     Dosage: UNK
     Route: 065
  2. VALACYCLOVIR HYDROCHLORIDE [Suspect]
     Active Substance: VALACYCLOVIR HYDROCHLORIDE
     Indication: Rash pruritic
  3. IBUPROFEN [Suspect]
     Active Substance: IBUPROFEN
     Indication: Varicella
     Dosage: UNK
     Route: 065
  4. IBUPROFEN [Suspect]
     Active Substance: IBUPROFEN
     Indication: Rash pruritic

REACTIONS (8)
  - Leukocytosis [Unknown]
  - Drug hypersensitivity [Unknown]
  - Acute generalised exanthematous pustulosis [Unknown]
  - Rash erythematous [Unknown]
  - Lymphadenopathy [Unknown]
  - Blister [Unknown]
  - Skin lesion [Unknown]
  - Pustule [Unknown]
